FAERS Safety Report 4998475-2 (Version None)
Quarter: 2006Q2

REPORT INFORMATION
  Report Type: 
  Country: None (occurrence: None)
  Receive Date: 20060508
  Receipt Date: 20060424
  Transmission Date: 20061013
  Serious: Yes (Other)
  Sender: FDA-Public Use
  Company Number: 2006055410

PATIENT
  Age: 52 Year
  Sex: Male
  Weight: 88.4514 kg

DRUGS (2)
  1. AZITHROMYCIN [Suspect]
     Indication: INFECTION PROPHYLAXIS
     Dosage: 500 MG (500 MG,ONCE),ORAL
     Route: 048
     Dates: start: 20060422, end: 20060422
  2. ALL OTHER THERAPEUTIC PRODUCTS [Concomitant]

REACTIONS (5)
  - BALANCE DISORDER [None]
  - FEELING COLD [None]
  - HYPERHIDROSIS [None]
  - INFLUENZA [None]
  - VOMITING [None]
